FAERS Safety Report 10994552 (Version 1)
Quarter: 2015Q2

REPORT INFORMATION
  Report Type: Spontaneous
  Country: US (occurrence: None)
  Receive Date: 20150406
  Receipt Date: 20150406
  Transmission Date: 20150821
  Serious: No
  Sender: FDA-Public Use
  Company Number: None

PATIENT
  Age: 42 Year
  Sex: Female
  Weight: 77.11 kg

DRUGS (10)
  1. CALCIUM [Concomitant]
     Active Substance: CALCIUM
  2. GABAPENTIN 100MG [Suspect]
     Active Substance: GABAPENTIN
     Indication: FIBROMYALGIA
     Dosage: 3 CAPSULES (300 MG TOTAL), THREE TIMES DAILY, TAKEN BY MOUTH
     Route: 048
     Dates: start: 20150402, end: 20150403
  3. TIRANIDINE [Concomitant]
  4. VITAMIN D [Concomitant]
     Active Substance: CHOLECALCIFEROL
  5. MULTI-VIT [Concomitant]
     Active Substance: VITAMINS
  6. IBUPROFEN. [Concomitant]
     Active Substance: IBUPROFEN
  7. DSS/C [Concomitant]
  8. CLARITIN-D 12 HOUR [Concomitant]
     Active Substance: LORATADINE\PSEUDOEPHEDRINE SULFATE
  9. SYNTHROID [Concomitant]
     Active Substance: LEVOTHYROXINE SODIUM
  10. PERCOCET [Concomitant]
     Active Substance: ACETAMINOPHEN\OXYCODONE HYDROCHLORIDE

REACTIONS (7)
  - Back pain [None]
  - Local swelling [None]
  - Pruritus [None]
  - Drug effect incomplete [None]
  - Malaise [None]
  - Decreased appetite [None]
  - Pulmonary congestion [None]

NARRATIVE: CASE EVENT DATE: 20150402
